FAERS Safety Report 6874949-4 (Version None)
Quarter: 2010Q2

REPORT INFORMATION
  Report Type: 
  Country: None (occurrence: None)
  Receive Date: 20100616
  Receipt Date: 20090609
  Transmission Date: 20101027
  Serious: Yes (Other)
  Sender: FDA-Public Use
  Company Number: WAES 0906USA01789

PATIENT
  Age: 39 Year
  Sex: Male

DRUGS (7)
  1. HYZAAR [Suspect]
     Indication: HYPERTENSION
     Dosage: PO
     Route: 048
     Dates: start: 20090301, end: 20090326
  2. XYREM [Suspect]
     Indication: CATAPLEXY
     Dosage: 3 GM/PO ; 4.G GM/BID/PO
     Route: 048
     Dates: start: 20080623, end: 20090212
  3. XYREM [Suspect]
     Indication: NARCOLEPSY
     Dosage: 3 GM/PO ; 4.G GM/BID/PO
     Route: 048
     Dates: start: 20080623, end: 20090212
  4. XYREM [Suspect]
     Indication: CATAPLEXY
     Dosage: 3 GM/PO ; 4.G GM/BID/PO
     Route: 048
     Dates: start: 20090213
  5. XYREM [Suspect]
     Indication: NARCOLEPSY
     Dosage: 3 GM/PO ; 4.G GM/BID/PO
     Route: 048
     Dates: start: 20090213
  6. COZAAR [Suspect]
     Indication: HYPERTENSION
     Dosage: PO
     Route: 048
     Dates: end: 20090301
  7. ADDERALL TABLETS UNK [Suspect]
     Indication: MEMORY IMPAIRMENT
     Dates: start: 20090318, end: 20090326

REACTIONS (1)
  - BLOOD PRESSURE DECREASED [None]
